FAERS Safety Report 7097987-8 (Version None)
Quarter: 2010Q4

REPORT INFORMATION
  Report Type: 
  Country: None (occurrence: None)
  Receive Date: 20101112
  Receipt Date: 20101018
  Transmission Date: 20110411
  Serious: No
  Sender: FDA-Public Use
  Company Number: US-BAYER-201037843NA

PATIENT
  Age: 21 Year
  Sex: Female

DRUGS (1)
  1. MIRENA [Suspect]
     Indication: CONTRACEPTION
     Dosage: FREQUENCY: CONTINUOUS
     Route: 015
     Dates: start: 20100101

REACTIONS (6)
  - ABDOMINAL PAIN [None]
  - DEVICE DISLOCATION [None]
  - HYPOMENORRHOEA [None]
  - MENORRHAGIA [None]
  - OVARIAN CYST [None]
  - POLYMENORRHOEA [None]
